FAERS Safety Report 7414590-8 (Version None)
Quarter: 2011Q2

REPORT INFORMATION
  Report Type: 
  Country: None (occurrence: None)
  Receive Date: 20110414
  Receipt Date: 20110408
  Transmission Date: 20111010
  Serious: Yes (Death, Life-Threatening, Hospitalization)
  Sender: FDA-Public Use
  Company Number: DE-BRISTOL-MYERS SQUIBB COMPANY-12476420

PATIENT
  Age: 72 Year
  Sex: Male
  Weight: 86 kg

DRUGS (2)
  1. GEMCITABINE [Suspect]
     Indication: BLADDER TRANSITIONAL CELL CARCINOMA
     Dosage: DAY 1,8 30 MIN INF
     Route: 042
     Dates: start: 20031209, end: 20031209
  2. PACLITAXEL [Suspect]
     Indication: BLADDER TRANSITIONAL CELL CARCINOMA
     Dosage: DAY 1 180 MIN INF
     Route: 042
     Dates: start: 20031202, end: 20031202

REACTIONS (4)
  - PNEUMONIA [None]
  - PULMONARY FIBROSIS [None]
  - RESPIRATORY FAILURE [None]
  - ANAEMIA [None]
